FAERS Safety Report 9956839 (Version 1)
Quarter: 2014Q1

REPORT INFORMATION
  Report Type: Report from Study
  Country: US (occurrence: US)
  Receive Date: 20140304
  Receipt Date: 20140304
  Transmission Date: 20141002
  Serious: No
  Sender: FDA-Public Use
  Company Number: US-ABBVIE-13P-163-1096284-00

PATIENT
  Age: 49 Year
  Sex: Female
  Weight: 104.42 kg

DRUGS (9)
  1. HUMIRA [Suspect]
     Indication: RHEUMATOID ARTHRITIS
     Route: 058
     Dates: start: 201303
  2. GABAPENTIN [Concomitant]
     Indication: RHEUMATOID ARTHRITIS
  3. FOLIC ACID [Concomitant]
     Indication: VITAMIN SUPPLEMENTATION
  4. AMITRIPTYLINE [Concomitant]
     Indication: RHEUMATOID ARTHRITIS
  5. LOSARTAN [Concomitant]
     Indication: HYPERTENSION
  6. HYDROXYCHLOROQUINE [Concomitant]
     Indication: RHEUMATOID ARTHRITIS
  7. POTASSIUM [Concomitant]
     Indication: MINERAL SUPPLEMENTATION
  8. LASIX [Concomitant]
     Indication: HYPERTENSION
  9. LOVAZA [Concomitant]
     Indication: BLOOD CHOLESTEROL INCREASED

REACTIONS (4)
  - Vomiting [Not Recovered/Not Resolved]
  - Nausea [Not Recovered/Not Resolved]
  - Diarrhoea [Not Recovered/Not Resolved]
  - Flank pain [Not Recovered/Not Resolved]
